FAERS Safety Report 24890839 (Version 2)
Quarter: 2025Q1

REPORT INFORMATION
  Report Type: Spontaneous
  Country: GB (occurrence: GB)
  Receive Date: 20250127
  Receipt Date: 20250131
  Transmission Date: 20250409
  Serious: Yes (Death, Other)
  Sender: AMNEAL
  Company Number: GB-AMNEAL PHARMACEUTICALS-2025-AMRX-00129

PATIENT
  Age: 0 Year
  Sex: Male
  Weight: 66 kg

DRUGS (25)
  1. ALYMSYS [Suspect]
     Active Substance: BEVACIZUMAB-MALY
     Indication: Palliative care
     Route: 065
     Dates: start: 20241004
  2. ALYMSYS [Suspect]
     Active Substance: BEVACIZUMAB-MALY
     Route: 065
     Dates: start: 20241025
  3. ALYMSYS [Suspect]
     Active Substance: BEVACIZUMAB-MALY
     Route: 065
     Dates: start: 20241115
  4. ALYMSYS [Suspect]
     Active Substance: BEVACIZUMAB-MALY
     Route: 065
     Dates: start: 20241206
  5. CARBOPLATIN [Concomitant]
     Active Substance: CARBOPLATIN
     Indication: Palliative care
     Route: 065
     Dates: start: 20241004
  6. CARBOPLATIN [Concomitant]
     Active Substance: CARBOPLATIN
     Route: 065
     Dates: start: 20241025
  7. CARBOPLATIN [Concomitant]
     Active Substance: CARBOPLATIN
     Route: 065
     Dates: start: 20241115
  8. CARBOPLATIN [Concomitant]
     Active Substance: CARBOPLATIN
     Route: 065
     Dates: start: 20241206
  9. PACLITAXEL [Concomitant]
     Active Substance: PACLITAXEL
     Indication: Palliative care
     Route: 065
     Dates: start: 20241004
  10. PACLITAXEL [Concomitant]
     Active Substance: PACLITAXEL
     Route: 065
     Dates: start: 20241025
  11. PACLITAXEL [Concomitant]
     Active Substance: PACLITAXEL
     Route: 065
     Dates: start: 20241115
  12. PACLITAXEL [Concomitant]
     Active Substance: PACLITAXEL
     Route: 065
     Dates: start: 20241206
  13. ATEZOLIZUMAB [Concomitant]
     Active Substance: ATEZOLIZUMAB
     Indication: Palliative care
     Route: 065
     Dates: start: 20241004
  14. ATEZOLIZUMAB [Concomitant]
     Active Substance: ATEZOLIZUMAB
     Route: 065
     Dates: start: 20241025
  15. ATEZOLIZUMAB [Concomitant]
     Active Substance: ATEZOLIZUMAB
     Route: 065
     Dates: start: 20241115
  16. ATEZOLIZUMAB [Concomitant]
     Active Substance: ATEZOLIZUMAB
     Route: 065
     Dates: start: 20241206
  17. CETIRIZINE [Concomitant]
     Active Substance: CETIRIZINE HYDROCHLORIDE
     Indication: Product used for unknown indication
     Dosage: 10 MILLIGRAM, QD (10MG ON FOR 3 NIGHTS STARTING DAY BEFORE TREATMENT)
     Route: 065
  18. GRANISETRON [Concomitant]
     Active Substance: GRANISETRON
     Indication: Product used for unknown indication
     Route: 042
  19. AMLODIPINE [Concomitant]
     Active Substance: AMLODIPINE BESYLATE
     Indication: Product used for unknown indication
     Dosage: 5 MILLIGRAM, DAILY
     Route: 065
  20. CHLORPHENIRAMINE MALEATE [Concomitant]
     Active Substance: CHLORPHENIRAMINE MALEATE
     Indication: Product used for unknown indication
     Route: 042
  21. DEXAMETHASONE [Concomitant]
     Active Substance: DEXAMETHASONE
     Indication: Product used for unknown indication
     Route: 048
  22. ONDANSETRON [Concomitant]
     Active Substance: ONDANSETRON
     Indication: Product used for unknown indication
     Dosage: 8 MILLIGRAM, EVERY 12HR (8MG ORAL TWICE DAILY FOR 2 DAYS POST TREATMENT)
     Route: 048
  23. METOCLOPRAMIDE [Concomitant]
     Active Substance: METOCLOPRAMIDE
     Indication: Product used for unknown indication
     Route: 048
  24. DIPROBASE [PARAFFIN, LIQUID;WHITE SOFT PARAFFIN] [Concomitant]
     Indication: Product used for unknown indication
     Route: 065
  25. COCODAMOL [Concomitant]
     Active Substance: ACETAMINOPHEN\CODEINE PHOSPHATE
     Indication: Product used for unknown indication
     Route: 065

REACTIONS (14)
  - Intestinal perforation [Fatal]
  - Tachycardia [Unknown]
  - Metabolic acidosis [Unknown]
  - Agonal respiration [Unknown]
  - Blood pressure decreased [Unknown]
  - Unresponsive to stimuli [Unknown]
  - Cardiac output decreased [Unknown]
  - Haemoptysis [Unknown]
  - Neutropenia [Unknown]
  - Hypertension [Unknown]
  - Hypophagia [Unknown]
  - Somnolence [Unknown]
  - Constipation [Unknown]
  - Abdominal pain [Unknown]

NARRATIVE: CASE EVENT DATE: 20241215
